FAERS Safety Report 4990604-X (Version None)
Quarter: 2006Q2

REPORT INFORMATION
  Report Type: 
  Country: None (occurrence: None)
  Receive Date: 20060427
  Receipt Date: 20060418
  Transmission Date: 20061013
  Serious: Yes (Hospitalization, Other)
  Sender: FDA-Public Use
  Company Number: 2006018620

PATIENT
  Age: 53 Year
  Sex: Female
  Weight: 59.8748 kg

DRUGS (16)
  1. LIPITOR [Suspect]
     Indication: HYPERLIPIDAEMIA
     Dosage: 10 MG (10 MG, 1 IN 1 D)
     Dates: start: 20010101
  2. OXYCONTIN (OXYCONDONE HYDROCHLORIDE) [Concomitant]
     Indication: ILL-DEFINED DISORDER
     Dates: start: 20051201, end: 20051201
  3. ALL OTHER THERAPEUTIC PRODUCTS (ALL OTHER THERAPEUTIC PRODUCTS) [Suspect]
     Indication: INSOMNIA
     Dates: start: 20060101, end: 20060101
  4. ALL OTHER THERAPEUTIC PRODUCTS (ALL OTHER THERAPEUTIC PRODUCTS) [Suspect]
     Indication: MIGRAINE
  5. XANAX XR [Concomitant]
  6. SYNTHROID [Concomitant]
  7. ACETYLSALICYIC ACID (ACETYLSALICYLIC ACID) [Concomitant]
  8. TRIAMTERENE (TRIAMTERENE) [Concomitant]
  9. ALPHAGAN [Concomitant]
  10. XALATAN [Concomitant]
  11. VITAMIN E [Concomitant]
  12. MULTIVITAMIN [Concomitant]
  13. GLUCOSAMIDE (GLUCOSAMINE) [Concomitant]
  14. CHONDROITAN (CHONDROITIN SULFATE) [Concomitant]
  15. VALERINA COMP (AURANTI CORTEX FRUCTUS DULCIS, CHAMOMILE, DIPHENHYDRAMI [Concomitant]
  16. ASCRIPTIN A/D (ACETYSLALICYCLIC ACID, ALUMINOOUM HYDROXIDE GEL, MAGNES [Concomitant]

REACTIONS (15)
  - ANOREXIA [None]
  - BLOOD TRIGLYCERIDES INCREASED [None]
  - CONSTIPATION [None]
  - DEHYDRATION [None]
  - DRUG DISPENSING ERROR [None]
  - INSOMNIA [None]
  - LOSS OF CONSCIOUSNESS [None]
  - MUSCLE SPASMS [None]
  - NAUSEA [None]
  - RESTLESS LEGS SYNDROME [None]
  - RETCHING [None]
  - TRANSIENT ISCHAEMIC ATTACK [None]
  - VOMITING [None]
  - WEIGHT DECREASED [None]
  - WEIGHT LOSS POOR [None]
